FAERS Safety Report 5503850-3 (Version None)
Quarter: 2007Q4

REPORT INFORMATION
  Report Type: 
  Country: None (occurrence: None)
  Receive Date: 20071030
  Receipt Date: 20071008
  Transmission Date: 20080405
  Serious: Yes (Other)
  Sender: FDA-Public Use
  Company Number: CHPA2007US10648

PATIENT
  Age: 83 Year
  Sex: Female
  Weight: 81.6 kg

DRUGS (1)
  1. MYOFLEX ANALGESIC CREME (TRIETHANOLAMINE SALICYLATE) [Suspect]
     Dosage: TOPICAL
     Route: 061

REACTIONS (2)
  - BLISTER [None]
  - INTENTIONAL DRUG MISUSE [None]
